FAERS Safety Report 9068557 (Version 1)
Quarter: 2013Q1

REPORT INFORMATION
  Report Type: Spontaneous
  Country: US (occurrence: None)
  Receive Date: 20130212
  Receipt Date: 20130212
  Transmission Date: 20140127
  Serious: Yes (Other)
  Sender: FDA-Public Use
  Company Number: None

PATIENT
  Age: 14 Year
  Sex: Female

DRUGS (1)
  1. NUTROPIN AQ NUSPIN 5 [Suspect]
     Indication: HYPOPITUITARISM
     Dosage: 0.7MG DAILY SQ
     Route: 058
     Dates: start: 20100128, end: 20130206

REACTIONS (2)
  - Dizziness [None]
  - Dysstasia [None]
